FAERS Safety Report 24657931 (Version 2)
Quarter: 2024Q4

REPORT INFORMATION
  Report Type: Spontaneous
  Country: SE (occurrence: SE)
  Receive Date: 20241125
  Receipt Date: 20241128
  Transmission Date: 20250115
  Serious: Yes (Hospitalization)
  Sender: TEVA
  Company Number: None

PATIENT
  Age: 68 Year
  Sex: Male

DRUGS (1)
  1. BICALUTAMIDE [Suspect]
     Active Substance: BICALUTAMIDE
     Indication: Product used for unknown indication
     Dosage: BIKALUTAMID
     Route: 065

REACTIONS (2)
  - Cardiac arrest [Recovering/Resolving]
  - Ventricular fibrillation [Recovering/Resolving]

NARRATIVE: CASE EVENT DATE: 20231218
